FAERS Safety Report 4917801-3 (Version None)
Quarter: 2006Q1

REPORT INFORMATION
  Report Type: 
  Country: None (occurrence: None)
  Receive Date: 20060214
  Receipt Date: 20060131
  Transmission Date: 20060701
  Serious: Yes (Hospitalization)
  Sender: FDA-Public Use
  Company Number: 230058K06CAN

PATIENT
  Sex: 0

DRUGS (3)
  1. REBIF [Suspect]
     Indication: RELAPSING-REMITTING MULTIPLE SCLEROSIS
     Dates: start: 20050826
  2. VENLAFAXINE HCL [Concomitant]
  3. AMANTADINE HCL [Concomitant]

REACTIONS (1)
  - CONVULSION [None]
